FAERS Safety Report 17777314 (Version 1)
Quarter: 2020Q2

REPORT INFORMATION
  Report Type: Spontaneous
  Country: FR (occurrence: FR)
  Receive Date: 20200513
  Receipt Date: 20200513
  Transmission Date: 20200714
  Serious: Yes (Hospitalization)
  Sender: FDA-Public Use
  Company Number: FR-AXELLIA-003126

PATIENT
  Age: 57 Year
  Sex: Male
  Weight: 78 kg

DRUGS (2)
  1. CEFEPIME [Suspect]
     Active Substance: CEFEPIME HYDROCHLORIDE
     Indication: HIDRADENITIS
     Route: 040
     Dates: start: 20200307, end: 20200308
  2. VANCOMYCIN [Suspect]
     Active Substance: VANCOMYCIN
     Indication: HIDRADENITIS
     Route: 040
     Dates: start: 20200307, end: 20200308

REACTIONS (1)
  - Red man syndrome [Recovered/Resolved]

NARRATIVE: CASE EVENT DATE: 20200307
